FAERS Safety Report 11460484 (Version 1)
Quarter: 2015Q3

REPORT INFORMATION
  Report Type: Spontaneous
  Country: US (occurrence: US)
  Receive Date: 20150904
  Receipt Date: 20150904
  Transmission Date: 20151125
  Serious: Yes (Death)
  Sender: FDA-Public Use
  Company Number: US-INCYTE CORPORATION-2015IN004424

PATIENT
  Age: 84 Year
  Sex: Female

DRUGS (8)
  1. FLUOXETINE HYDROCHLORIDE. [Concomitant]
     Active Substance: FLUOXETINE HYDROCHLORIDE
     Dosage: 10 MG
  2. LUTEIN                             /01638501/ [Concomitant]
     Active Substance: LUTEIN
     Dosage: 20 MG
  3. PREDNISONE. [Concomitant]
     Active Substance: PREDNISONE
     Dosage: 5 MG
  4. VITAMIN D                          /00107901/ [Concomitant]
     Active Substance: ERGOCALCIFEROL
     Dosage: 1000 UNITS
  5. FISH OIL [Concomitant]
     Active Substance: FISH OIL
     Dosage: 340-100
  6. VITAMIN C [Concomitant]
     Active Substance: ASCORBIC ACID
     Dosage: 100 MG
  7. MULTIVITAMIN                       /07504101/ [Concomitant]
     Active Substance: VITAMINS
  8. JAKAFI [Suspect]
     Active Substance: RUXOLITINIB
     Indication: MYELOFIBROSIS
     Dosage: 10 MG, BID
     Route: 048
     Dates: start: 20150127

REACTIONS (1)
  - Death [Fatal]

NARRATIVE: CASE EVENT DATE: 20150815
